FAERS Safety Report 8983089 (Version 1)
Quarter: 2012Q4

REPORT INFORMATION
  Report Type: Report from Study
  Country: GB (occurrence: US)
  Receive Date: 20121223
  Receipt Date: 20121223
  Transmission Date: 20130627
  Serious: Yes (Hospitalization, Other)
  Sender: FDA-Public Use
  Company Number: US-BRISTOL-MYERS SQUIBB COMPANY-15231715

PATIENT
  Age: 53 Year
  Sex: Male
  Weight: 73.01 kg

DRUGS (11)
  1. IPILIMUMAB [Suspect]
     Indication: MALIGNANT MELANOMA
     Dosage: rnd dose on 02Apr10
3rd dose on 14May10
     Route: 042
     Dates: start: 20100309
  2. BEVACIZUMAB [Suspect]
     Indication: MALIGNANT MELANOMA
     Dosage: rnd dose on 02Apr10
3rd dose on 14May1014May10
     Route: 042
     Dates: start: 20100309
  3. ADVAIR DISKUS [Concomitant]
     Dates: start: 20100527, end: 20100729
  4. AZITHROMYCIN [Concomitant]
     Dates: start: 20100527, end: 20100606
  5. HYCODAN [Concomitant]
     Dates: start: 20100713, end: 20100729
  6. HYDROXYZINE HCL [Concomitant]
     Dates: start: 20100525, end: 20100729
  7. IMODIUM [Concomitant]
     Dates: start: 20100121, end: 20100527
  8. PEPCID AC [Concomitant]
     Dates: start: 20100309, end: 20100527
  9. TEMODAR [Concomitant]
     Dates: start: 20100715, end: 20100728
  10. TESSALON PERLE [Concomitant]
     Dates: start: 20100525, end: 20100803
  11. ZOFRAN [Concomitant]
     Dates: start: 20100715, end: 20100729

REACTIONS (3)
  - Autoimmune hepatitis [Recovering/Resolving]
  - Chest pain [Unknown]
  - Malignant neoplasm progression [Unknown]
